FAERS Safety Report 22132311 (Version 1)
Quarter: 2023Q1

REPORT INFORMATION
  Report Type: Other
  Country: US (occurrence: US)
  Receive Date: 20230323
  Receipt Date: 20230323
  Transmission Date: 20230418
  Serious: No
  Sender: FDA-Public Use
  Company Number: US-TRAVERE-2022TVT00395

PATIENT
  Age: 1 Year
  Sex: Male

DRUGS (1)
  1. CHOLIC ACID [Suspect]
     Active Substance: CHOLIC ACID
     Indication: Cerebrohepatorenal syndrome
     Dosage: 50 MG, AS DIRECTED.
     Route: 048
     Dates: start: 20220426

REACTIONS (2)
  - Diarrhoea [Unknown]
  - Conjunctivitis [Unknown]
